FAERS Safety Report 4562237-0 (Version None)
Quarter: 2005Q1

REPORT INFORMATION
  Report Type: 
  Country: None (occurrence: None)
  Receive Date: 20050127
  Receipt Date: 20050121
  Transmission Date: 20050727
  Serious: Yes (Hospitalization, Other)
  Sender: FDA-Public Use
  Company Number: PHRM2005FR00619

PATIENT
  Age: 42 Year
  Sex: Female

DRUGS (4)
  1. GRAPEFRUIT JUICE [Concomitant]
  2. LAMISIL [Suspect]
     Dosage: 250 MG, QD
     Route: 048
     Dates: start: 20041201, end: 20041215
  3. XYZALL [Suspect]
     Dosage: 1 DF, QD
     Route: 048
     Dates: start: 20041201, end: 20041215
  4. NUTRITION SUPPLEMENTS [Concomitant]

REACTIONS (5)
  - CONFUSIONAL STATE [None]
  - DELIRIUM [None]
  - HALLUCINATION, AUDITORY [None]
  - PERSECUTORY DELUSION [None]
  - THINKING ABNORMAL [None]
